FAERS Safety Report 21551049 (Version 1)
Quarter: 2022Q4

REPORT INFORMATION
  Report Type: Spontaneous
  Country: US (occurrence: None)
  Receive Date: 20221102
  Receipt Date: 20221102
  Transmission Date: 20230112
  Serious: Yes (Hospitalization)
  Sender: FDA-Public Use
  Company Number: None

PATIENT
  Sex: Female

DRUGS (1)
  1. PROLIA [Suspect]
     Active Substance: DENOSUMAB
     Indication: Senile osteoporosis
     Dosage: 60MG OTHER SUBCUTANEOUS
     Route: 058

REACTIONS (4)
  - Back pain [None]
  - Pain [None]
  - Spinal decompression [None]
  - Secretion discharge [None]
